FAERS Safety Report 9975832 (Version 2)
Quarter: 2014Q1

REPORT INFORMATION
  Report Type: Spontaneous
  Country: US (occurrence: US)
  Receive Date: 20140306
  Receipt Date: 20140313
  Transmission Date: 20141002
  Serious: Yes (Hospitalization, Other)
  Sender: FDA-Public Use
  Company Number: CHPA2014US003367

PATIENT
  Age: 77 Year
  Sex: Female

DRUGS (8)
  1. GAS-X EXTRA STRENGTH SOFTGELS [Suspect]
     Indication: FLATULENCE
     Dosage: 1 OR 2 AT A TIME, UNK
  2. GAS-X EXTRA STRENGTH SOFTGELS [Suspect]
     Indication: ABDOMINAL DISTENSION
     Dosage: UNK, TID
     Route: 048
  3. GAS-X EXTRA STRENGTH SOFTGELS [Suspect]
     Indication: ABDOMINAL PAIN
  4. GAS-X EXTRA STRENGTH SOFTGELS [Suspect]
     Indication: OFF LABEL USE
  5. GAS-X UNKNOWN THIN STRIP [Suspect]
     Indication: FLATULENCE
     Dosage: 1 DF, PRN
     Route: 048
  6. GAS-X UNKNOWN THIN STRIP [Suspect]
     Indication: ABDOMINAL DISTENSION
     Dosage: 1 DF, PRN
     Route: 048
  7. GAS-X UNKNOWN THIN STRIP [Suspect]
     Indication: ABDOMINAL PAIN
  8. GAS-X UNKNOWN THIN STRIP [Suspect]
     Indication: OFF LABEL USE

REACTIONS (6)
  - Colitis ischaemic [Recovered/Resolved]
  - Abdominal pain [Recovered/Resolved]
  - Abdominal distension [Recovered/Resolved]
  - Lyme disease [Recovered/Resolved]
  - Gout [Not Recovered/Not Resolved]
  - Incorrect dose administered [Unknown]
